FAERS Safety Report 24777155 (Version 4)
Quarter: 2025Q1

REPORT INFORMATION
  Report Type: Spontaneous
  Country: IN (occurrence: IN)
  Receive Date: 20241226
  Receipt Date: 20250311
  Transmission Date: 20250409
  Serious: Yes (Life-Threatening, Other)
  Sender: RANBAXY
  Company Number: IN-SUN PHARMACEUTICAL INDUSTRIES LTD-2024R1-486616

PATIENT
  Age: 76 Year
  Sex: Male

DRUGS (2)
  1. MESALAMINE [Interacting]
     Active Substance: MESALAMINE
     Indication: Colitis ulcerative
     Dosage: 1200 MILLIGRAM, BID
     Route: 048
     Dates: start: 2022
  2. WARFARIN [Interacting]
     Active Substance: WARFARIN
     Indication: Anticoagulant therapy
     Route: 065

REACTIONS (3)
  - Gastrointestinal haemorrhage [Unknown]
  - Potentiating drug interaction [Unknown]
  - Anticoagulation drug level above therapeutic [Unknown]
